FAERS Safety Report 15698209 (Version 1)
Quarter: 2018Q4

REPORT INFORMATION
  Report Type: Spontaneous
  Country: US (occurrence: US)
  Receive Date: 20181206
  Receipt Date: 20181206
  Transmission Date: 20190205
  Serious: Yes (Other)
  Sender: FDA-Public Use
  Company Number: None

PATIENT
  Age: 36 Year
  Sex: Female
  Weight: 63.45 kg

DRUGS (2)
  1. PARAGARD T 380A [Concomitant]
     Active Substance: COPPER
     Dates: start: 20140304
  2. NITROFURANTOIN MONOHYDRATE [Suspect]
     Active Substance: NITROFURANTOIN MONOHYDRATE
     Indication: URINARY TRACT INFECTION
     Route: 048
     Dates: start: 20180502, end: 20180516

REACTIONS (4)
  - Nausea [None]
  - Chills [None]
  - Pyrexia [None]
  - Vomiting [None]

NARRATIVE: CASE EVENT DATE: 20180607
